FAERS Safety Report 17752632 (Version 1)
Quarter: 2020Q2

REPORT INFORMATION
  Report Type: Spontaneous
  Country: NL (occurrence: NL)
  Receive Date: 20200506
  Receipt Date: 20200506
  Transmission Date: 20200714
  Serious: Yes (Hospitalization)
  Sender: FDA-Public Use
  Company Number: NL-BAYER-2020-073446

PATIENT
  Age: 61 Year
  Sex: Male
  Weight: 88 kg

DRUGS (3)
  1. CHLOROQUINE. [Suspect]
     Active Substance: CHLOROQUINE
     Indication: COVID-19
     Dosage: UNKNOWN, CAN BE REQUESTED FROM PHYSICIAN IN HOSPITAL
     Dates: start: 20200330, end: 20200401
  2. CEFTRIAXON [Concomitant]
     Active Substance: CEFTRIAXONE
     Dosage: UNKNOWN, CAN BE REQUESTED FROM PHYSICIAN IN HOSPITAL
  3. AZITROMYCINE [Concomitant]
     Active Substance: AZITHROMYCIN
     Dosage: UNKNOWN, CAN BE REQUESTED FROM PHYSICIAN IN HOSPITAL

REACTIONS (1)
  - Epilepsy [Recovered/Resolved]

NARRATIVE: CASE EVENT DATE: 20200401
